FAERS Safety Report 5175481-9 (Version None)
Quarter: 2006Q4

REPORT INFORMATION
  Report Type: 
  Country: None (occurrence: None)
  Receive Date: 20061212
  Receipt Date: 20061212
  Transmission Date: 20070319
  Serious: Yes (Death)
  Sender: FDA-Public Use
  Company Number: None

PATIENT
  Sex: Female

DRUGS (4)
  1. PAXIL [Suspect]
     Indication: MAJOR DEPRESSION
     Dosage: 10 MG DAILY PO
     Route: 048
     Dates: start: 20060918, end: 20061012
  2. PAXIL [Suspect]
     Indication: PERSONALITY DISORDER
     Dosage: 10 MG DAILY PO
     Route: 048
     Dates: start: 20060918, end: 20061012
  3. PAXIL [Suspect]
     Indication: MAJOR DEPRESSION
     Dosage: 20 MG DAILY PO
     Route: 048
     Dates: start: 20061012, end: 20061029
  4. PAXIL [Suspect]
     Indication: PERSONALITY DISORDER
     Dosage: 20 MG DAILY PO
     Route: 048
     Dates: start: 20061012, end: 20061029

REACTIONS (3)
  - COMPLETED SUICIDE [None]
  - INJURY ASPHYXIATION [None]
  - THERAPY REGIMEN CHANGED [None]
